FAERS Safety Report 19380701 (Version 1)
Quarter: 2021Q2

REPORT INFORMATION
  Report Type: Spontaneous
  Country: US (occurrence: US)
  Receive Date: 20210607
  Receipt Date: 20210607
  Transmission Date: 20210717
  Serious: Yes (Hospitalization)
  Sender: FDA-Public Use
  Company Number: NVSC2021US125347

PATIENT
  Age: 58 Year
  Sex: Male

DRUGS (2)
  1. RANITIDINE. [Suspect]
     Active Substance: RANITIDINE
     Indication: ULCER
     Dosage: 150 MG, BID
     Route: 048
     Dates: start: 200107, end: 202003
  2. RANITIDINE. [Suspect]
     Active Substance: RANITIDINE
     Indication: PRODUCT USED FOR UNKNOWN INDICATION
     Dosage: 150 MG, BID
     Route: 048
     Dates: start: 200107, end: 202003

REACTIONS (2)
  - Colorectal cancer [Recovering/Resolving]
  - Bladder cancer [Unknown]

NARRATIVE: CASE EVENT DATE: 20070801
